FAERS Safety Report 24042758 (Version 3)
Quarter: 2024Q3

REPORT INFORMATION
  Report Type: Report from Study
  Country: CO (occurrence: CO)
  Receive Date: 20240702
  Receipt Date: 20240720
  Transmission Date: 20241017
  Serious: Yes (Hospitalization, Other)
  Sender: NOVARTIS
  Company Number: CO-002147023-NVSC2024CO101941

PATIENT
  Age: 69 Year
  Sex: Female
  Weight: 44 kg

DRUGS (4)
  1. KISQALI [Suspect]
     Active Substance: RIBOCICLIB
     Indication: Hormone receptor negative HER2 positive breast cancer
     Dosage: 600 MG, QD
     Route: 048
     Dates: start: 20190101
  2. KISQALI [Suspect]
     Active Substance: RIBOCICLIB
     Dosage: 400 MG, QD
     Route: 048
     Dates: end: 20240505
  3. FULVESTRANT [Concomitant]
     Active Substance: FULVESTRANT
     Indication: Breast cancer
     Dosage: UNK (EVERY 21 DAYS)
     Route: 030
  4. PREGABALIN [Concomitant]
     Active Substance: PREGABALIN
     Indication: Pain
     Dosage: UNK, QD, 4 YEARS AGO
     Route: 048

REACTIONS (21)
  - Cardiac failure [Unknown]
  - Renal failure [Unknown]
  - Inflammation [Not Recovered/Not Resolved]
  - Cardiomegaly [Not Recovered/Not Resolved]
  - Renal impairment [Not Recovered/Not Resolved]
  - Cardiac disorder [Not Recovered/Not Resolved]
  - Hypothyroidism [Not Recovered/Not Resolved]
  - Leukopenia [Unknown]
  - Neutropenia [Unknown]
  - Alopecia [Unknown]
  - Dizziness [Unknown]
  - Anaemia [Unknown]
  - Haemorrhage [Unknown]
  - Platelet count decreased [Unknown]
  - Cystitis noninfective [Unknown]
  - Blood creatinine increased [Unknown]
  - Hypertension [Unknown]
  - Illness [Unknown]
  - Fatigue [Unknown]
  - Nausea [Unknown]
  - Decreased appetite [Unknown]

NARRATIVE: CASE EVENT DATE: 20240401
